FAERS Safety Report 4263914-1 (Version None)
Quarter: 2004Q1

REPORT INFORMATION
  Report Type: 
  Country: None (occurrence: None)
  Receive Date: 20040102
  Receipt Date: 20031219
  Transmission Date: 20041129
  Serious: Yes (Other)
  Sender: FDA-Public Use
  Company Number: GBS031013974

PATIENT
  Age: 63 Year
  Sex: Male

DRUGS (2)
  1. PERGOLIDE MESYLATE [Suspect]
     Indication: PARKINSON'S DISEASE
     Dosage: 1.5 MG/3 DAY
     Dates: start: 20000101, end: 20031001
  2. SINEMET [Concomitant]

REACTIONS (2)
  - ABNORMAL BEHAVIOUR [None]
  - GAMBLING [None]
